FAERS Safety Report 12200760 (Version 3)
Quarter: 2016Q2

REPORT INFORMATION
  Report Type: Spontaneous
  Country: JP (occurrence: JP)
  Receive Date: 20160322
  Receipt Date: 20160602
  Transmission Date: 20160815
  Serious: Yes (Hospitalization, Other)
  Sender: FDA-Public Use
  Company Number: JP-GLAXOSMITHKLINE-JP2016JPN037624

PATIENT
  Age: 42 Year
  Sex: Female
  Weight: 45 kg

DRUGS (9)
  1. SERENACE [Concomitant]
     Active Substance: HALOPERIDOL
     Dosage: 1.5 MG, 1D
  2. LIMAS [Concomitant]
     Active Substance: LITHIUM CARBONATE
     Dosage: 100 MG, BID
  3. NITRAZEPAM [Concomitant]
     Active Substance: NITRAZEPAM
     Dosage: 5 MG, 1D
  4. LAMICTAL [Suspect]
     Active Substance: LAMOTRIGINE
     Dosage: UNK
     Route: 048
     Dates: start: 20160215
  5. LAMICTAL [Suspect]
     Active Substance: LAMOTRIGINE
     Dosage: 200 MG, 1D
     Route: 048
     Dates: start: 201602, end: 20160309
  6. LAMICTAL [Suspect]
     Active Substance: LAMOTRIGINE
     Indication: BIPOLAR DISORDER
     Dosage: 12.5 MG, 1D
     Route: 048
     Dates: start: 20160130, end: 2016
  7. LAMICTAL [Suspect]
     Active Substance: LAMOTRIGINE
     Dosage: 25 MG, 1D
     Route: 048
     Dates: start: 20160212, end: 2016
  8. BENZALIN (JAPAN) [Concomitant]
     Dosage: 5 MG, 1D
     Dates: start: 20160130
  9. CONTOMIN [Concomitant]
     Active Substance: CHLORPROMAZINE
     Dosage: 25 MG, 1D

REACTIONS (12)
  - Dermatitis exfoliative [Recovered/Resolved]
  - Drug reaction with eosinophilia and systemic symptoms [Recovering/Resolving]
  - Herpes zoster [Recovered/Resolved]
  - Generalised erythema [Unknown]
  - Drug eruption [Unknown]
  - Lip erosion [Unknown]
  - Pyrexia [Unknown]
  - Oral mucosa erosion [Unknown]
  - Suicide attempt [Recovered/Resolved]
  - Ocular hyperaemia [Unknown]
  - Erythema of eyelid [Unknown]
  - Intentional overdose [Unknown]

NARRATIVE: CASE EVENT DATE: 2016
